FAERS Safety Report 7364741-9 (Version None)
Quarter: 2011Q1

REPORT INFORMATION
  Report Type: 
  Country: None (occurrence: None)
  Receive Date: 20110321
  Receipt Date: 20110315
  Transmission Date: 20110831
  Serious: Yes (Death, Hospitalization)
  Sender: FDA-Public Use
  Company Number: PHHY2011TR21264

PATIENT
  Sex: Female

DRUGS (2)
  1. VALPROATE [Suspect]
     Dosage: 500 MG, UNK
     Route: 064
  2. VALPROATE [Suspect]
     Dosage: 250 MG/DAY
     Route: 064

REACTIONS (27)
  - FOETAL ANTICONVULSANT SYNDROME [None]
  - PULMONARY VALVE STENOSIS [None]
  - MICROGNATHIA [None]
  - FOETAL CARDIAC DISORDER [None]
  - OPTIC NERVE HYPOPLASIA [None]
  - PECTUS EXCAVATUM [None]
  - CONGENITAL HYDROCEPHALUS [None]
  - RESPIRATORY FAILURE [None]
  - CARDIOMEGALY [None]
  - MICROPHTHALMOS [None]
  - DRUG EXPOSURE DURING PREGNANCY [None]
  - MOVEMENT DISORDER [None]
  - HYDROCEPHALUS [None]
  - HIGH ARCHED PALATE [None]
  - NOSE DEFORMITY [None]
  - ARACHNODACTYLY [None]
  - CONGENITAL CYSTIC KIDNEY DISEASE [None]
  - RESPIRATORY DISTRESS [None]
  - ATRIAL SEPTAL DEFECT [None]
  - CRANIOSYNOSTOSIS [None]
  - RENAL HYPOPLASIA [None]
  - EBSTEIN'S ANOMALY [None]
  - CAMPTODACTYLY CONGENITAL [None]
  - HYPOTONIA [None]
  - VENTRICULAR HYPERTROPHY [None]
  - NEONATAL DISORDER [None]
  - EAR DISORDER [None]
